FAERS Safety Report 24798498 (Version 3)
Quarter: 2025Q1

REPORT INFORMATION
  Report Type: Report from Study
  Country: US (occurrence: US)
  Receive Date: 20250102
  Receipt Date: 20250206
  Transmission Date: 20250408
  Serious: Yes (Other)
  Sender: AMGEN
  Company Number: US-AMGEN-USASL2024256886

PATIENT
  Age: 34 Year
  Sex: Male

DRUGS (1)
  1. NPLATE [Suspect]
     Active Substance: ROMIPLOSTIM
     Indication: Thrombocytopenia
     Route: 058

REACTIONS (7)
  - Deep vein thrombosis [Unknown]
  - Neutropenia [Unknown]
  - Platelet count abnormal [Unknown]
  - Antiphospholipid antibodies positive [Unknown]
  - Microcytosis [Unknown]
  - Haematocrit decreased [Unknown]
  - Haemoglobin decreased [Unknown]

NARRATIVE: CASE EVENT DATE: 20241211
